FAERS Safety Report 7792519-0 (Version None)
Quarter: 2011Q3

REPORT INFORMATION
  Report Type: 
  Country: None (occurrence: None)
  Receive Date: 20110930
  Receipt Date: 20110930
  Transmission Date: 20111222
  Serious: Yes (Hospitalization)
  Sender: FDA-Public Use
  Company Number: None

PATIENT
  Age: 23 Year
  Sex: Female
  Weight: 68.0396 kg

DRUGS (1)
  1. ZOFRAN [Suspect]
     Indication: PREGNANCY
     Dosage: 1 TABLET  8 HRS MOUTH
     Route: 048
     Dates: start: 20110701, end: 20110901

REACTIONS (4)
  - HEART RATE IRREGULAR [None]
  - TACHYCARDIA [None]
  - MATERNAL EXPOSURE DURING PREGNANCY [None]
  - CHEST PAIN [None]
